FAERS Safety Report 11197954 (Version 2)
Quarter: 2015Q3

REPORT INFORMATION
  Report Type: Spontaneous
  Country: US (occurrence: US)
  Receive Date: 20150617
  Receipt Date: 20150917
  Transmission Date: 20151125
  Serious: No
  Sender: FDA-Public Use
  Company Number: US-GALDERMA-US15001926

PATIENT
  Sex: Female

DRUGS (8)
  1. MIRVASO [Suspect]
     Active Substance: BRIMONIDINE TARTRATE
     Indication: ROSACEA
  2. DOXYCYCLINE. [Concomitant]
     Active Substance: DOXYCYCLINE
     Indication: ROSACEA
     Dosage: 100 MG
     Route: 048
     Dates: start: 201201, end: 201407
  3. OMEGA 3 [Concomitant]
     Active Substance: OMEGA-3 FATTY ACIDS
     Indication: ROSACEA
     Route: 048
  4. MIRVASO [Suspect]
     Active Substance: BRIMONIDINE TARTRATE
     Indication: ERYTHEMA
     Dosage: 0.33%
     Route: 061
     Dates: start: 201312
  5. OLIVE OIL BAR SOAP [Concomitant]
     Indication: THERAPEUTIC SKIN CARE TOPICAL
     Route: 061
  6. DIGESTIVE ENZYMES [Concomitant]
     Active Substance: UNSPECIFIED INGREDIENT
     Indication: ROSACEA
     Route: 048
  7. PROBIOTICS [Concomitant]
     Active Substance: PROBIOTICS NOS
     Indication: ROSACEA
     Route: 048
  8. GLUTAMINE [Concomitant]
     Active Substance: GLUTAMINE
     Route: 048

REACTIONS (11)
  - Erythema [Recovered/Resolved]
  - Skin burning sensation [Not Recovered/Not Resolved]
  - Drug ineffective [Not Recovered/Not Resolved]
  - Emotional distress [Not Recovered/Not Resolved]
  - Pain of skin [Not Recovered/Not Resolved]
  - Skin exfoliation [Not Recovered/Not Resolved]
  - Rash papular [Not Recovered/Not Resolved]
  - Ocular rosacea [Not Recovered/Not Resolved]
  - Eye pain [Not Recovered/Not Resolved]
  - Eye irritation [Not Recovered/Not Resolved]
  - Flushing [Not Recovered/Not Resolved]

NARRATIVE: CASE EVENT DATE: 2013
